FAERS Safety Report 8026046-2 (Version None)
Quarter: 2012Q1

REPORT INFORMATION
  Report Type: 
  Country: None (occurrence: None)
  Receive Date: 20120105
  Receipt Date: 20110517
  Transmission Date: 20120608
  Serious: No
  Sender: FDA-Public Use
  Company Number: US-ABBOTT-11P-163-0727343-00

PATIENT
  Age: 51 Year
  Sex: Female
  Weight: 77.18 kg

DRUGS (5)
  1. SYNTHROID [Suspect]
     Indication: HYPOTHYROIDISM
     Dates: end: 20110501
  2. WELLBUTRIN [Suspect]
     Dates: start: 20110501
  3. SYNTHROID [Suspect]
     Dosage: 1 TAB DAILY MON-SAT, 1/2 TAB SUN
     Dates: start: 20110501
  4. WELLBUTRIN [Suspect]
     Indication: DEPRESSION
     Dates: start: 19940101, end: 20110501
  5. ATIVAN [Concomitant]
     Indication: PRODUCT USED FOR UNKNOWN INDICATION

REACTIONS (11)
  - HYPERHIDROSIS [None]
  - PAIN IN JAW [None]
  - DIZZINESS [None]
  - ASTHENIA [None]
  - NAUSEA [None]
  - COLD SWEAT [None]
  - BLOOD THYROID STIMULATING HORMONE INCREASED [None]
  - FEELING COLD [None]
  - HEADACHE [None]
  - NECK PAIN [None]
  - MUSCULOSKELETAL PAIN [None]
